FAERS Safety Report 4477545-1 (Version None)
Quarter: 2004Q4

REPORT INFORMATION
  Report Type: 
  Country: None (occurrence: None)
  Receive Date: 20041012
  Receipt Date: 20040928
  Transmission Date: 20050328
  Serious: No
  Sender: FDA-Public Use
  Company Number: THYM-10295

PATIENT
  Age: 28 Year
  Sex: Male

DRUGS (2)
  1. THYMOGLOBULIN [Suspect]
     Indication: RENAL TRANSPLANT
  2. STEROIDS [Concomitant]

REACTIONS (2)
  - ARTHRALGIA [None]
  - PYREXIA [None]
